FAERS Safety Report 5094915-1 (Version None)
Quarter: 2006Q3

REPORT INFORMATION
  Report Type: 
  Country: None (occurrence: None)
  Receive Date: 20060901
  Receipt Date: 20060824
  Transmission Date: 20061208
  Serious: Yes (Other)
  Sender: FDA-Public Use
  Company Number: PHHO2006AU14025

PATIENT
  Sex: Female

DRUGS (3)
  1. ZOLEDRONATE [Suspect]
     Indication: MULTIPLE MYELOMA
  2. PREDNISOLONE [Concomitant]
     Indication: MULTIPLE MYELOMA
  3. THALIDOMIDE [Concomitant]
     Indication: MULTIPLE MYELOMA

REACTIONS (1)
  - OSTEONECROSIS [None]
